FAERS Safety Report 19795082 (Version 1)
Quarter: 2021Q3

REPORT INFORMATION
  Report Type: Spontaneous
  Country: US (occurrence: US)
  Receive Date: 20210906
  Receipt Date: 20210906
  Transmission Date: 20211014
  Serious: Yes (Disabling)
  Sender: FDA-Public Use
  Company Number: None

PATIENT
  Age: 67 Year
  Sex: Female
  Weight: 56.25 kg

DRUGS (14)
  1. MULTIVITAMIN [Concomitant]
     Active Substance: VITAMINS
  2. AFO BRACE [Concomitant]
  3. PREGABALIN. [Suspect]
     Active Substance: PREGABALIN
     Indication: NEURALGIA
     Dosage: ?          QUANTITY:1 CAPSULE(S);?
     Route: 048
     Dates: start: 20200101, end: 20210722
  4. ACYCLOVIR. [Concomitant]
     Active Substance: ACYCLOVIR
  5. MAGNESIUM GLYCINATE/MALATE [Concomitant]
  6. VITAMIN D3 [Concomitant]
     Active Substance: CHOLECALCIFEROL
  7. VITAMIN B12 [Concomitant]
     Active Substance: CYANOCOBALAMIN
  8. ZINC. [Concomitant]
     Active Substance: ZINC
  9. LORATIDINE [Concomitant]
     Active Substance: LORATADINE
  10. IRON [Concomitant]
     Active Substance: IRON
  11. CALCIUM CITRATE [Concomitant]
     Active Substance: CALCIUM CITRATE
  12. C [Concomitant]
  13. FISH OIL [Concomitant]
     Active Substance: FISH OIL
  14. SODIUM ALENDRONATE [Concomitant]
     Active Substance: ALENDRONATE SODIUM

REACTIONS (12)
  - Amnesia [None]
  - Tachyphrenia [None]
  - Oedema [None]
  - Lethargy [None]
  - Depersonalisation/derealisation disorder [None]
  - Withdrawal syndrome [None]
  - Anger [None]
  - Weight increased [None]
  - Agitation [None]
  - Muscle atrophy [None]
  - Feeling abnormal [None]
  - Anxiety [None]

NARRATIVE: CASE EVENT DATE: 20200101
